FAERS Safety Report 8374077-5 (Version None)
Quarter: 2012Q2

REPORT INFORMATION
  Report Type: 
  Country: None (occurrence: None)
  Receive Date: 20120521
  Receipt Date: 20120511
  Transmission Date: 20120825
  Serious: Yes (Other)
  Sender: FDA-Public Use
  Company Number: US-ASTRAZENECA-2010SE24235

PATIENT
  Age: 65 Year
  Sex: Female
  Weight: 97.5 kg

DRUGS (8)
  1. SEROQUEL [Suspect]
     Indication: SLEEP DISORDER
     Dosage: AT NIGHT
     Route: 048
     Dates: start: 20060101
  2. SEROQUEL [Suspect]
     Route: 048
  3. SEROQUEL [Suspect]
     Route: 048
  4. SEROQUEL [Suspect]
     Dosage: 200 MG 2 TABLETS AT NIGHT
     Route: 048
  5. SEROQUEL [Suspect]
     Indication: DEPRESSION
     Dosage: AT NIGHT
     Route: 048
     Dates: start: 20060101
  6. SEROQUEL [Suspect]
     Route: 048
  7. SEROQUEL [Suspect]
     Dosage: 200 MG 2 TABLETS AT NIGHT
     Route: 048
  8. SEROQUEL [Suspect]
     Route: 048

REACTIONS (5)
  - EYE PROSTHESIS USER [None]
  - MUSCULOSKELETAL PAIN [None]
  - BACK PAIN [None]
  - NECK PAIN [None]
  - ANOGENITAL WARTS [None]
